FAERS Safety Report 25768946 (Version 2)
Quarter: 2025Q3

REPORT INFORMATION
  Report Type: Spontaneous
  Country: CL (occurrence: CL)
  Receive Date: 20250905
  Receipt Date: 20250930
  Transmission Date: 20251020
  Serious: Yes (Life-Threatening)
  Sender: BOEHRINGER INGELHEIM
  Company Number: CL-BoehringerIngelheim-2025-BI-093632

PATIENT
  Age: 57 Year
  Sex: Male
  Weight: 50 kg

DRUGS (1)
  1. PRADAXA [Suspect]
     Active Substance: DABIGATRAN ETEXILATE MESYLATE
     Indication: Atrial fibrillation
     Dates: start: 20240801, end: 20250805

REACTIONS (1)
  - Ischaemic stroke [Recovered/Resolved]

NARRATIVE: CASE EVENT DATE: 20250805
